FAERS Safety Report 9286763 (Version 4)
Quarter: 2013Q3

REPORT INFORMATION
  Report Type: Spontaneous
  Country: DK (occurrence: None)
  Receive Date: 20130508
  Receipt Date: 20130715
  Transmission Date: 20140515
  Serious: Yes (Other)
  Sender: FDA-Public Use
  Company Number: 1696612

PATIENT
  Age: 62 Year
  Sex: Female

DRUGS (17)
  1. CARBOPLATIN [Suspect]
     Indication: PRODUCT USED FOR UNKNOWN INDICATION
  2. VINORELBINE TARTRATE [Suspect]
     Indication: PRODUCT USED FOR UNKNOWN INDICATION
     Route: 042
     Dates: start: 20051209
  3. TRASTUZUMAB [Suspect]
     Indication: PRODUCT USED FOR UNKNOWN INDICATION
     Route: 042
     Dates: start: 20041122
  4. CAPECITABINE [Suspect]
     Indication: PRODUCT USED FOR UNKNOWN INDICATION
     Dosage: SERIES 1 AND 2: 2 GM  FOR TWICE FROM DAY 1 TO 14 PER SERIES, SERIES 3, 1.5 FROM TWICE DAY 1 TO 14. 1500 MG EVEMOMG AMD 1800 MG EVENING.
  5. BEVACIZUMAB [Suspect]
     Indication: PRODUCT USED FOR UNKNOWN INDICATION
     Dosage: CYCLICAL
  6. DOCETAXEL [Suspect]
     Indication: PRODUCT USED FOR UNKNOWN INDICATION
     Route: 042
     Dates: start: 20041123
  7. PACLITAXEL [Suspect]
     Indication: PRODUCT USED FOR UNKNOWN INDICATION
  8. LAPATINIB TOSILATE [Suspect]
     Indication: PRODUCT USED FOR UNKNOWN INDICATION
     Dosage: 1 D
     Dates: start: 20090925
  9. PREDNISOLON [Concomitant]
  10. CLEMASTINE FUMARATE [Concomitant]
  11. RANITIDINE HYDROCHLORIDE [Concomitant]
  12. METHYLPREDNISOLONE SODIUM SUCCINATE [Concomitant]
  13. LORAZEPAM [Concomitant]
  14. GRANISETRON HYDROCHLORIDE [Concomitant]
  15. METOCLOPRAMIDE HYDROCHLORIDE [Concomitant]
  16. ONDANSETRON [Concomitant]
  17. ENALAPRIL MALEATE [Concomitant]

REACTIONS (41)
  - Dysaesthesia [None]
  - Abdominal discomfort [None]
  - Headache [None]
  - Influenza like illness [None]
  - Fatigue [None]
  - Heart rate irregular [None]
  - Dry mouth [None]
  - Vulvovaginal dryness [None]
  - Nail disorder [None]
  - Fluid retention [None]
  - Lymphoedema [None]
  - Ejection fraction decreased [None]
  - Calcium ionised increased [None]
  - Chest pain [None]
  - Sleep disorder [None]
  - Rash pustular [None]
  - Skin fissures [None]
  - Cheilitis [None]
  - Lip swelling [None]
  - Cough [None]
  - Neurological symptom [None]
  - Nausea [None]
  - Dysgeusia [None]
  - Dyspnoea [None]
  - Constipation [None]
  - Diarrhoea [None]
  - Disease progression [None]
  - Neutropenia [None]
  - Erythema [None]
  - Palmar-plantar erythrodysaesthesia syndrome [None]
  - Swelling [None]
  - Myalgia [None]
  - Sensory disturbance [None]
  - Malaise [None]
  - Dyspnoea exertional [None]
  - Hyperaesthesia [None]
  - Hypotension [None]
  - Atelectasis [None]
  - Paraesthesia [None]
  - Malignant neoplasm progression [None]
  - Metastases to lung [None]
